FAERS Safety Report 12531561 (Version 2)
Quarter: 2016Q3

REPORT INFORMATION
  Report Type: Spontaneous
  Country: US (occurrence: US)
  Receive Date: 20160706
  Receipt Date: 20160711
  Transmission Date: 20161109
  Serious: No
  Sender: FDA-Public Use
  Company Number: GXBR2016US001733

PATIENT
  Sex: Male

DRUGS (1)
  1. PREDNISOLONE SANDOZ [Suspect]
     Active Substance: PREDNISOLONE
     Indication: PRODUCT USED FOR UNKNOWN INDICATION
     Dosage: UNK DF, UNK
     Route: 065

REACTIONS (5)
  - Throat tightness [Unknown]
  - Throat irritation [Unknown]
  - Dyspnoea [Unknown]
  - Flatulence [Not Recovered/Not Resolved]
  - Rash [Unknown]
